FAERS Safety Report 24924235 (Version 2)
Quarter: 2025Q2

REPORT INFORMATION
  Report Type: Spontaneous
  Country: US (occurrence: US)
  Receive Date: 20250204
  Receipt Date: 20250402
  Transmission Date: 20250717
  Serious: No
  Sender: BAYER
  Company Number: US-BAYER-2025A016634

PATIENT
  Sex: Female

DRUGS (1)
  1. MIRALAX [Suspect]
     Active Substance: POLYETHYLENE GLYCOL 3350
     Indication: Gastrointestinal disorder
     Dosage: UNK, BID
     Route: 048
     Dates: end: 20250203

REACTIONS (3)
  - Diarrhoea [Not Recovered/Not Resolved]
  - Product prescribing issue [None]
  - Product label issue [None]

NARRATIVE: CASE EVENT DATE: 20250203
